FAERS Safety Report 7571022-7 (Version None)
Quarter: 2011Q2

REPORT INFORMATION
  Report Type: 
  Country: None (occurrence: None)
  Receive Date: 20110624
  Receipt Date: 20110610
  Transmission Date: 20111010
  Serious: Yes (Other)
  Sender: FDA-Public Use
  Company Number: US-WATSON-2011-09307

PATIENT
  Sex: Female

DRUGS (1)
  1. GABAPENTIN [Suspect]
     Indication: PRODUCT USED FOR UNKNOWN INDICATION
     Dosage: UNK MG, DAILY
     Route: 048

REACTIONS (25)
  - CATATONIA [None]
  - AGITATION [None]
  - MIGRAINE [None]
  - MYOCLONUS [None]
  - CONFUSIONAL STATE [None]
  - INFLUENZA LIKE ILLNESS [None]
  - ANXIETY [None]
  - IRRITABILITY [None]
  - DYSARTHRIA [None]
  - TACHYCARDIA [None]
  - HEADACHE [None]
  - DRUG WITHDRAWAL SYNDROME [None]
  - ASTERIXIS [None]
  - DROOLING [None]
  - HYPERREFLEXIA [None]
  - INSOMNIA [None]
  - HALLUCINATION [None]
  - PALPITATIONS [None]
  - PYREXIA [None]
  - RESTLESSNESS [None]
  - HYPERTENSIVE CRISIS [None]
  - STATUS EPILEPTICUS [None]
  - HYPERHIDROSIS [None]
  - DISORIENTATION [None]
  - PHOTOPHOBIA [None]
